FAERS Safety Report 7276910-7 (Version None)
Quarter: 2011Q1

REPORT INFORMATION
  Report Type: 
  Country: None (occurrence: None)
  Receive Date: 20110207
  Receipt Date: 20110124
  Transmission Date: 20110831
  Serious: Yes (Hospitalization)
  Sender: FDA-Public Use
  Company Number: US-BIOGENIDEC-2010BI044443

PATIENT
  Age: 43 Year
  Sex: Female
  Weight: 67 kg

DRUGS (5)
  1. MIDRIN [Concomitant]
     Indication: MIGRAINE
  2. ZANAFLEX [Concomitant]
     Indication: MUSCLE SPASMS
  3. TYSABRI [Suspect]
     Indication: MULTIPLE SCLEROSIS
     Route: 042
     Dates: start: 20070109, end: 20080104
  4. AMPYRA [Concomitant]
     Indication: MOBILITY DECREASED
     Route: 048
     Dates: start: 20100701
  5. TYSABRI [Suspect]
     Route: 042
     Dates: start: 20100623

REACTIONS (2)
  - MUSCLE SPASMS [None]
  - MULTIPLE SCLEROSIS RELAPSE [None]
